FAERS Safety Report 18624208 (Version 1)
Quarter: 2020Q4

REPORT INFORMATION
  Report Type: Spontaneous
  Country: AU (occurrence: AU)
  Receive Date: 20201216
  Receipt Date: 20201216
  Transmission Date: 20210114
  Serious: Yes (Congenital Anomaly, Other)
  Sender: FDA-Public Use
  Company Number: AU-ASTRAZENECA-2018SE59988

PATIENT
  Sex: Female

DRUGS (1)
  1. SYMBICORT [Suspect]
     Active Substance: BUDESONIDE\FORMOTEROL FUMARATE DIHYDRATE
     Dosage: 50/3 UG/INHALATION, UNKNOWN UNKNOWN
     Route: 055

REACTIONS (2)
  - Spinal muscular atrophy [Unknown]
  - Circumstance or information capable of leading to medication error [Unknown]
